FAERS Safety Report 6312502-1 (Version None)
Quarter: 2009Q3

REPORT INFORMATION
  Report Type: 
  Country: None (occurrence: None)
  Receive Date: 20090813
  Receipt Date: 20090729
  Transmission Date: 20100115
  Serious: Yes (Death)
  Sender: FDA-Public Use
  Company Number: AE 2009-072

PATIENT
  Age: 90 Year
  Sex: Male

DRUGS (3)
  1. FAZACLO ODT [Suspect]
     Dosage: 18.75 MG QHS PO
     Route: 048
     Dates: start: 20070801, end: 20090307
  2. NORVASC [Concomitant]
  3. CELEXA [Concomitant]

REACTIONS (1)
  - DEATH [None]
